FAERS Safety Report 10290346 (Version 1)
Quarter: 2014Q3

REPORT INFORMATION
  Report Type: Spontaneous
  Country: GB (occurrence: None)
  Receive Date: 20140708
  Receipt Date: 20140708
  Transmission Date: 20150326
  Serious: Yes (Disabling)
  Sender: FDA-Public Use
  Company Number: AUR-APL-2014-07073

PATIENT
  Age: 48 Year
  Sex: Male
  Weight: 126 kg

DRUGS (1)
  1. MIRTAZAPINE (MIRTAZAPINE) UNKNOWN, UNKNOWN [Suspect]
     Active Substance: MIRTAZAPINE
     Indication: DEPRESSION
     Route: 048
     Dates: start: 201311, end: 201402

REACTIONS (6)
  - Increased appetite [None]
  - Arthralgia [None]
  - Somnolence [None]
  - Anger [None]
  - Oedema [None]
  - Myalgia [None]

NARRATIVE: CASE EVENT DATE: 201312
